FAERS Safety Report 12447393 (Version 1)
Quarter: 2016Q2

REPORT INFORMATION
  Report Type: Spontaneous
  Country: ES (occurrence: ES)
  Receive Date: 20160608
  Receipt Date: 20160608
  Transmission Date: 20160815
  Serious: Yes (Hospitalization, Other)
  Sender: FDA-Public Use
  Company Number: ES-PFIZER INC-2016285769

PATIENT
  Age: 76 Year
  Sex: Female

DRUGS (5)
  1. TRANGOREX [Suspect]
     Active Substance: AMIODARONE HYDROCHLORIDE
     Dosage: UNK
     Route: 048
     Dates: start: 20160525
  2. SINTROM [Concomitant]
     Active Substance: ACENOCOUMAROL
     Dosage: UNK
     Dates: start: 20160427
  3. FUROSEMIDA [Concomitant]
     Active Substance: FUROSEMIDE
     Dosage: UNK
     Dates: start: 20160418
  4. ENALAPRIL MALEATE. [Concomitant]
     Active Substance: ENALAPRIL MALEATE
     Dosage: UNK
     Dates: start: 20160418
  5. TRANGOREX [Suspect]
     Active Substance: AMIODARONE HYDROCHLORIDE
     Indication: ATRIAL FIBRILLATION
     Dosage: 200 MG, DAILY
     Route: 048
     Dates: start: 20160418, end: 20160512

REACTIONS (11)
  - Hyperthyroidism [Recovered/Resolved]
  - Acute kidney injury [Unknown]
  - Pruritus [Unknown]
  - Hyperkalaemia [Unknown]
  - Condition aggravated [Unknown]
  - Metabolic acidosis [Unknown]
  - Bicytopenia [Unknown]
  - Dyspnoea [Unknown]
  - Vomiting [Unknown]
  - Diarrhoea [Unknown]
  - Atrial fibrillation [Unknown]

NARRATIVE: CASE EVENT DATE: 20160507
